FAERS Safety Report 4754854-X (Version None)
Quarter: 2005Q3

REPORT INFORMATION
  Report Type: 
  Country: None (occurrence: None)
  Receive Date: 20050825
  Receipt Date: 20050812
  Transmission Date: 20060218
  Serious: Yes (Hospitalization, Other)
  Sender: FDA-Public Use
  Company Number: 2005105013

PATIENT
  Age: 61 Year
  Sex: Male
  Weight: 105 kg

DRUGS (2)
  1. VIAGRA [Suspect]
     Indication: ILL-DEFINED DISORDER
     Dosage: 50 MG (100 MG, PRN), ORAL
     Route: 048
     Dates: start: 20050201, end: 20050301
  2. ATACAND [Concomitant]

REACTIONS (19)
  - ABNORMAL SENSATION IN EYE [None]
  - ARACHNOID CYST [None]
  - BLINDNESS UNILATERAL [None]
  - CAROTID ARTERY DISEASE [None]
  - CEREBRAL CYST [None]
  - CHOROIDAL INFARCTION [None]
  - ECHOCARDIOGRAM ABNORMAL [None]
  - EYE PAIN [None]
  - HEPATOCELLULAR DAMAGE [None]
  - HYPERTENSIVE CRISIS [None]
  - MACULAR OEDEMA [None]
  - MACULOPATHY [None]
  - MYDRIASIS [None]
  - RETINOPATHY HYPERTENSIVE [None]
  - SCAR [None]
  - VENTRICULAR HYPERTROPHY [None]
  - VISUAL DISTURBANCE [None]
  - VISUAL FIELD DEFECT [None]
  - VITREOUS DETACHMENT [None]
